FAERS Safety Report 10023775 (Version 1)
Quarter: 2014Q1

REPORT INFORMATION
  Report Type: Spontaneous
  Country: US (occurrence: None)
  Receive Date: 20140319
  Receipt Date: 20140319
  Transmission Date: 20141002
  Serious: Yes (Other)
  Sender: FDA-Public Use
  Company Number: None

PATIENT
  Age: 31 Year
  Sex: Female
  Weight: 101.61 kg

DRUGS (1)
  1. RICOLA COUGH DROPS [Suspect]
     Indication: COUGH
     Dosage: ONE LOZENGE
     Route: 048
     Dates: start: 20140313, end: 20140315

REACTIONS (1)
  - Hypersensitivity [None]
